FAERS Safety Report 7737850-X (Version None)
Quarter: 2011Q3

REPORT INFORMATION
  Report Type: 
  Country: None (occurrence: None)
  Receive Date: 20110908
  Receipt Date: 20110830
  Transmission Date: 20111222
  Serious: Yes (Other)
  Sender: FDA-Public Use
  Company Number: PHHY2011JP74911

PATIENT
  Age: 57 Year
  Sex: Male

DRUGS (1)
  1. TASIGNA [Suspect]
     Indication: CHRONIC MYELOID LEUKAEMIA
     Route: 048

REACTIONS (4)
  - ELECTROCARDIOGRAM T WAVE INVERSION [None]
  - ARTERIOSPASM CORONARY [None]
  - ARTERIOSCLEROSIS [None]
  - ANGINA PECTORIS [None]
